FAERS Safety Report 17841190 (Version 1)
Quarter: 2020Q2

REPORT INFORMATION
  Report Type: Report from Study
  Country: DE (occurrence: DE)
  Receive Date: 20200529
  Receipt Date: 20200529
  Transmission Date: 20200714
  Serious: Yes (Other)
  Sender: FDA-Public Use
  Company Number: GXKR2014DE002942

PATIENT
  Sex: Female

DRUGS (1)
  1. SOMATROPIN. [Suspect]
     Active Substance: SOMATROPIN
     Indication: GROWTH HORMONE DEFICIENCY
     Dosage: UNK (0.03 - 0.065MG/KG/DAY)
     Route: 058
     Dates: start: 20061204, end: 20121124

REACTIONS (10)
  - Asthenia [Recovered/Resolved]
  - Fatigue [Recovered/Resolved]
  - Otitis media [Not Recovered/Not Resolved]
  - Neurodermatitis [Not Recovered/Not Resolved]
  - Infection susceptibility increased [Recovered/Resolved]
  - Hypermetropia [Not Recovered/Not Resolved]
  - Arthralgia [Recovered/Resolved]
  - Hypoacusis [Not Recovered/Not Resolved]
  - Rhinitis [Not Recovered/Not Resolved]
  - Bronchitis [Recovered/Resolved]

NARRATIVE: CASE EVENT DATE: 20070110
